FAERS Safety Report 19792886 (Version 1)
Quarter: 2021Q3

REPORT INFORMATION
  Report Type: Spontaneous
  Country: US (occurrence: US)
  Receive Date: 20210906
  Receipt Date: 20210906
  Transmission Date: 20211014
  Serious: Yes (Hospitalization)
  Sender: FDA-Public Use
  Company Number: US-ACCORD-237527

PATIENT
  Age: 42 Year
  Sex: Male

DRUGS (3)
  1. HALOPERIDOL. [Concomitant]
     Active Substance: HALOPERIDOL
     Indication: SCHIZOPHRENIA
  2. CLOZAPINE. [Suspect]
     Active Substance: CLOZAPINE
     Indication: SCHIZOPHRENIA
     Dosage: AT THE FULL DOSE
  3. PARACETAMOL [Concomitant]
     Active Substance: ACETAMINOPHEN

REACTIONS (5)
  - Dysarthria [Recovered/Resolved]
  - Somnolence [Recovered/Resolved]
  - Drug titration error [Unknown]
  - Treatment noncompliance [Unknown]
  - Mental status changes [Recovered/Resolved]
